FAERS Safety Report 4547105-2 (Version None)
Quarter: 2005Q1

REPORT INFORMATION
  Report Type: 
  Country: None (occurrence: None)
  Receive Date: 20050105
  Receipt Date: 20041220
  Transmission Date: 20050727
  Serious: Yes (Hospitalization)
  Sender: FDA-Public Use
  Company Number: 140950USA

PATIENT
  Age: 58 Year
  Sex: Male
  Weight: 81.6475 kg

DRUGS (9)
  1. ETOPOSIDE [Suspect]
     Dates: start: 20041001
  2. TAXOL [Suspect]
     Dosage: 200 MG/M2 INTRAVENOUS (NOS)
     Route: 042
     Dates: start: 20041001
  3. CARBOPLATIN [Suspect]
     Dosage: 543 MILLIGRAM DAILY INTRAVENOUS (NOS)
     Route: 042
     Dates: start: 20041001
  4. AUGMENTIN '125' [Suspect]
     Dosage: 175 MILLIGRAM DAILY ORAL
     Route: 048
     Dates: start: 20041008, end: 20041011
  5. COUMADIN [Concomitant]
  6. TOPROL-XL [Concomitant]
  7. COMPAZINE [Concomitant]
  8. LORTAB [Concomitant]
  9. VITAMIN B6 [Concomitant]

REACTIONS (4)
  - BONE MARROW DEPRESSION [None]
  - FEBRILE NEUTROPENIA [None]
  - INTERNATIONAL NORMALISED RATIO INCREASED [None]
  - PNEUMONIA [None]
